FAERS Safety Report 7867149-2 (Version None)
Quarter: 2011Q4

REPORT INFORMATION
  Report Type: 
  Country: None (occurrence: None)
  Receive Date: 20111028
  Receipt Date: 20111025
  Transmission Date: 20120403
  Serious: Yes (Other)
  Sender: FDA-Public Use
  Company Number: US-JNJFOC-20110605209

PATIENT
  Age: 71 Year
  Sex: Female

DRUGS (1)
  1. DOXORUBICIN HCL [Suspect]
     Indication: OVARIAN CANCER METASTATIC
     Route: 042

REACTIONS (1)
  - TONGUE NEOPLASM MALIGNANT STAGE UNSPECIFIED [None]
